FAERS Safety Report 8960164 (Version 1)
Quarter: 2012Q4

REPORT INFORMATION
  Report Type: Report from Study
  Country: DE (occurrence: DE)
  Receive Date: 20121211
  Receipt Date: 20121211
  Transmission Date: 20130627
  Serious: Yes (Hospitalization)
  Sender: FDA-Public Use
  Company Number: DE-BAXTER-2012BAX025891

PATIENT
  Age: 49 Year
  Sex: Female
  Weight: 83 kg

DRUGS (6)
  1. ENDOXAN 1G [Suspect]
     Indication: BREAST CANCER
     Route: 042
     Dates: start: 20100312
  2. ENDOXAN 1G [Suspect]
     Route: 042
     Dates: start: 20100401
  3. MYOCET [Suspect]
     Indication: BREAST CANCER
     Route: 042
     Dates: start: 20100312
  4. MYOCET [Suspect]
     Route: 042
     Dates: start: 20100401
  5. TRASTUZUMAB [Suspect]
     Indication: BREAST CANCER
     Route: 065
     Dates: start: 20100312
  6. TRASTUZUMAB [Suspect]
     Route: 065
     Dates: start: 20100401

REACTIONS (1)
  - Deep vein thrombosis [Recovered/Resolved with Sequelae]
